FAERS Safety Report 7776841-X (Version None)
Quarter: 2011Q3

REPORT INFORMATION
  Report Type: 
  Country: None (occurrence: None)
  Receive Date: 20110923
  Receipt Date: 20110923
  Transmission Date: 20111222
  Serious: Yes (Hospitalization, Other)
  Sender: FDA-Public Use
  Company Number: None

PATIENT
  Age: 82 Year
  Sex: Male
  Weight: 66 kg

DRUGS (1)
  1. WARFARIN SODIUM [Suspect]
     Dosage: 5.71 MG EVERY DAY PO
     Route: 048
     Dates: start: 20100219, end: 20110214

REACTIONS (5)
  - SKELETAL INJURY [None]
  - SYNCOPE [None]
  - FALL [None]
  - SUBDURAL HAEMATOMA [None]
  - INTERNATIONAL NORMALISED RATIO INCREASED [None]
